FAERS Safety Report 7592225-1 (Version None)
Quarter: 2011Q3

REPORT INFORMATION
  Report Type: 
  Country: None (occurrence: None)
  Receive Date: 20110706
  Receipt Date: 20110623
  Transmission Date: 20111222
  Serious: No
  Sender: FDA-Public Use
  Company Number: US-ELI_LILLY_AND_COMPANY-US201106000096

PATIENT
  Age: 58 Year
  Sex: Female

DRUGS (7)
  1. FORTEO [Suspect]
     Indication: OSTEOPOROSIS
  2. STADOL [Concomitant]
  3. METHYLPHENIDATE [Concomitant]
  4. XANAX [Concomitant]
  5. OXYCONTIN [Concomitant]
  6. ACTIQ [Concomitant]
  7. DURAGESIC-100 [Concomitant]

REACTIONS (5)
  - CYST [None]
  - PAIN IN EXTREMITY [None]
  - OSTEONECROSIS [None]
  - OSTEOCHONDROSIS [None]
  - UPPER LIMB FRACTURE [None]
